FAERS Safety Report 5991840-6 (Version None)
Quarter: 2008Q4

REPORT INFORMATION
  Report Type: 
  Country: None (occurrence: None)
  Receive Date: 20081202
  Receipt Date: 20071025
  Transmission Date: 20090506
  Serious: Yes (Other)
  Sender: FDA-Public Use
  Company Number: WAES 0707USA04740

PATIENT
  Age: 62 Year
  Sex: Female
  Weight: 72.1219 kg

DRUGS (3)
  1. FOSAMAX [Suspect]
     Indication: HIP SURGERY
     Dosage: 10 MG/DAILY/PO
     Route: 048
     Dates: start: 20001101
  2. FOSAMAX [Suspect]
     Indication: HIP SURGERY
     Dosage: 70 MG/WKY/PO
     Route: 048
     Dates: start: 20020101, end: 20050101
  3. PREMARIN [Concomitant]

REACTIONS (17)
  - ABSCESS [None]
  - ALLERGY TO METALS [None]
  - CELLULITIS [None]
  - DIPLOPIA [None]
  - EXOSTOSIS [None]
  - FISTULA DISCHARGE [None]
  - GINGIVAL INFECTION [None]
  - IMPAIRED HEALING [None]
  - JAW DISORDER [None]
  - MYALGIA [None]
  - OEDEMA MOUTH [None]
  - OPHTHALMOPLEGIA [None]
  - ORAL PAIN [None]
  - OSTEONECROSIS [None]
  - PAIN IN JAW [None]
  - PHARYNGITIS [None]
  - SINUSITIS [None]
